FAERS Safety Report 9419900 (Version 3)
Quarter: 2013Q3

REPORT INFORMATION
  Report Type: Spontaneous
  Country: RU (occurrence: RU)
  Receive Date: 20130725
  Receipt Date: 20130729
  Transmission Date: 20140515
  Serious: Yes (Other)
  Sender: FDA-Public Use
  Company Number: RU-ROCHE-1252554

PATIENT
  Sex: Female

DRUGS (2)
  1. KYTRIL [Suspect]
     Indication: NAUSEA
     Dosage: FOR 5 DAYS IN 21 DAYS
     Route: 048
  2. TEMOZOLOMIDE [Suspect]
     Indication: ANAPLASTIC OLIGODENDROGLIOMA
     Dosage: 10 COURSES IN 21 DAYS
     Route: 042

REACTIONS (1)
  - Haematotoxicity [Unknown]
